FAERS Safety Report 11844511 (Version 8)
Quarter: 2017Q1

REPORT INFORMATION
  Report Type: Report from Study
  Country: CA (occurrence: CA)
  Receive Date: 20151217
  Receipt Date: 20170302
  Transmission Date: 20170428
  Serious: Yes (Other)
  Sender: FDA-Public Use
  Company Number: CA-JNJFOC-20150215035

PATIENT
  Age: 81 Year
  Sex: Male

DRUGS (6)
  1. IMBRUVICA [Suspect]
     Active Substance: IBRUTINIB
     Indication: CHRONIC LYMPHOCYTIC LEUKAEMIA
     Route: 048
  2. IMBRUVICA [Suspect]
     Active Substance: IBRUTINIB
     Indication: CHRONIC LYMPHOCYTIC LEUKAEMIA
     Dosage: TREATMENT HELD FOR 2 WEEKS
     Route: 048
     Dates: start: 201606
  3. IMBRUVICA [Suspect]
     Active Substance: IBRUTINIB
     Indication: CHRONIC LYMPHOCYTIC LEUKAEMIA
     Route: 048
     Dates: start: 20160622
  4. ACYCLOVIR. [Concomitant]
     Active Substance: ACYCLOVIR
     Indication: PROPHYLAXIS
     Route: 065
  5. IMBRUVICA [Suspect]
     Active Substance: IBRUTINIB
     Indication: CHRONIC LYMPHOCYTIC LEUKAEMIA
     Route: 048
     Dates: start: 20150214
  6. IMBRUVICA [Suspect]
     Active Substance: IBRUTINIB
     Indication: CHRONIC LYMPHOCYTIC LEUKAEMIA
     Route: 048
     Dates: start: 201606

REACTIONS (27)
  - Cough [Recovered/Resolved]
  - Contusion [Recovering/Resolving]
  - Blood pressure increased [Not Recovered/Not Resolved]
  - Disturbance in attention [Not Recovered/Not Resolved]
  - Nausea [Recovered/Resolved]
  - Rash [Recovering/Resolving]
  - Platelet count decreased [Recovering/Resolving]
  - Neck pain [Recovered/Resolved]
  - Blood urine present [Not Recovered/Not Resolved]
  - Herpes zoster [Recovering/Resolving]
  - Disturbance in attention [Not Recovered/Not Resolved]
  - Dry skin [Not Recovered/Not Resolved]
  - Nail discolouration [Not Recovered/Not Resolved]
  - Rash erythematous [Not Recovered/Not Resolved]
  - White blood cell count increased [Recovered/Resolved]
  - Fatigue [Not Recovered/Not Resolved]
  - Laboratory test abnormal [Unknown]
  - Ear infection [Recovered/Resolved]
  - Hypothyroidism [Not Recovered/Not Resolved]
  - Skin disorder [Not Recovered/Not Resolved]
  - Haemoglobin decreased [Recovering/Resolving]
  - Pain in extremity [Not Recovered/Not Resolved]
  - Amnesia [Recovering/Resolving]
  - Petechiae [Not Recovered/Not Resolved]
  - Balance disorder [Not Recovered/Not Resolved]
  - Epistaxis [Not Recovered/Not Resolved]
  - Weight decreased [Recovering/Resolving]

NARRATIVE: CASE EVENT DATE: 2015
